FAERS Safety Report 10265151 (Version 1)
Quarter: 2014Q2

REPORT INFORMATION
  Report Type: Spontaneous
  Country: FR (occurrence: FR)
  Receive Date: 20140627
  Receipt Date: 20140627
  Transmission Date: 20141212
  Serious: Yes (Other)
  Sender: FDA-Public Use
  Company Number: FR-TEVA-490661ISR

PATIENT
  Age: 37 Year
  Sex: Female

DRUGS (3)
  1. AMOXICILLINE ACIDE CLAVULANIQUE RATIOPHARM [Suspect]
     Indication: BRONCHITIS
     Route: 048
     Dates: start: 20110415, end: 20110415
  2. BIOCALYPTOL [Suspect]
     Indication: BRONCHITIS
     Route: 048
     Dates: start: 20110415, end: 20110415
  3. XYZALL [Concomitant]
     Dosage: LONG-TERM TREATMENT

REACTIONS (8)
  - Dyspnoea [Recovered/Resolved]
  - Eyelid oedema [Recovered/Resolved]
  - Urticaria [Recovered/Resolved]
  - Paraesthesia [None]
  - Feeling hot [None]
  - Pruritus [None]
  - Rash [None]
  - Throat tightness [None]
